FAERS Safety Report 23749530 (Version 1)
Quarter: 2024Q2

REPORT INFORMATION
  Report Type: Spontaneous
  Country: DE (occurrence: DE)
  Receive Date: 20240416
  Receipt Date: 20240416
  Transmission Date: 20240715
  Serious: No
  Sender: FDA-Public Use
  Company Number: DE-MEN-2024-094359

PATIENT
  Sex: Male

DRUGS (1)
  1. RANEXA [Suspect]
     Active Substance: RANOLAZINE
     Indication: Angina pectoris
     Route: 048

REACTIONS (3)
  - Prescribed underdose [Unknown]
  - Inappropriate schedule of product administration [Unknown]
  - No adverse event [Unknown]
